FAERS Safety Report 7545786-2 (Version None)
Quarter: 2011Q2

REPORT INFORMATION
  Report Type: 
  Country: None (occurrence: None)
  Receive Date: 20110613
  Receipt Date: 20110613
  Transmission Date: 20111010
  Serious: Yes (Other)
  Sender: FDA-Public Use
  Company Number: None

PATIENT
  Sex: Female

DRUGS (1)
  1. LOESTRIN 1.5/30 [Suspect]

REACTIONS (3)
  - PRODUCT SUBSTITUTION ISSUE [None]
  - HEADACHE [None]
  - NAUSEA [None]
